FAERS Safety Report 8974339 (Version 1)
Quarter: 2012Q4

REPORT INFORMATION
  Report Type: 
  Country: US (occurrence: US)
  Receive Date: 20121219
  Receipt Date: 20121219
  Transmission Date: 20130627
  Serious: No
  Sender: FDA-Public Use
  Company Number: US-AMGEN-USASP2012059149

PATIENT
  Age: 89 Year
  Sex: Male

DRUGS (13)
  1. PROLIA [Suspect]
     Indication: BONE LOSS
     Dosage: 60 mg, q6mo
  2. PANTOPRAZOLE [Concomitant]
     Dosage: UNK
  3. IMODIUM [Concomitant]
     Dosage: UNK
  4. TAMSULOSIN [Concomitant]
     Dosage: UNK
  5. QUINAPRIL [Concomitant]
     Dosage: UNK
  6. ALLOPURINOL [Concomitant]
     Dosage: UNK
  7. PRESERVISION [Concomitant]
     Dosage: UNK
  8. VITAMIN B-12 [Concomitant]
     Dosage: UNK
  9. CHOLESTYRAMINE [Concomitant]
     Dosage: UNK
  10. LORTAB [Concomitant]
     Dosage: UNK
  11. LUPRON [Concomitant]
     Dosage: UNK
  12. LUNESTA [Concomitant]
     Dosage: UNK
  13. TYLENOL [Concomitant]
     Dosage: UNK

REACTIONS (2)
  - Device failure [Not Recovered/Not Resolved]
  - Tooth disorder [Not Recovered/Not Resolved]
